FAERS Safety Report 6249664-0 (Version None)
Quarter: 2009Q2

REPORT INFORMATION
  Report Type: 
  Country: None (occurrence: None)
  Receive Date: 20090625
  Receipt Date: 20090617
  Transmission Date: 20091009
  Serious: Yes (Hospitalization)
  Sender: FDA-Public Use
  Company Number: 1000007008

PATIENT
  Age: 88 Year
  Sex: Male

DRUGS (11)
  1. CITALOPRAM HYDROBROMIDE [Suspect]
     Dosage: 12 MG (12 MG, 1 IN 1 D), ORAL
     Route: 048
  2. SINTROM [Suspect]
     Dosage: AS REQUIRED, ORAL
     Route: 048
     Dates: end: 20090527
  3. ASPIRIN [Suspect]
     Dosage: 100 MG (100 MG, 1 IN 1 D), ORAL
     Route: 048
     Dates: end: 20090527
  4. CORVATON [Concomitant]
  5. PRAVASTATIN [Concomitant]
  6. OMEZOL [Concomitant]
  7. MIANSERIN [Concomitant]
  8. MINITRAN [Concomitant]
  9. ECOVENT [Concomitant]
  10. PULMICORT-100 [Concomitant]
  11. VITARUBIN [Concomitant]

REACTIONS (3)
  - CEREBRAL HAEMORRHAGE [None]
  - HYPERTENSION [None]
  - PROTHROMBIN TIME PROLONGED [None]
